FAERS Safety Report 6695091-1 (Version None)
Quarter: 2010Q2

REPORT INFORMATION
  Report Type: 
  Country: None (occurrence: None)
  Receive Date: 20100423
  Receipt Date: 20100416
  Transmission Date: 20101027
  Serious: Yes (Other)
  Sender: FDA-Public Use
  Company Number: PHHY2010AU16527

PATIENT
  Age: 12 Year
  Sex: Male
  Weight: 35 kg

DRUGS (5)
  1. RITALIN [Suspect]
     Dosage: 20 MG, QD
     Route: 048
     Dates: start: 20081001
  2. CATAPRES                                /UNK/ [Concomitant]
     Indication: SLEEP DISORDER
     Dosage: TAKEN AT NIGHT
     Dates: start: 20090401
  3. CLONAZEPAM [Concomitant]
     Dosage: UNK MG, BID
     Dates: start: 20090401
  4. CLONAZEPAM [Concomitant]
     Dosage: 0.5 MG, BID
     Dates: start: 20090601
  5. RISPERIDONE [Concomitant]
     Route: 048

REACTIONS (2)
  - SOMNOLENCE [None]
  - UNRESPONSIVE TO STIMULI [None]
